FAERS Safety Report 6754393-0 (Version None)
Quarter: 2010Q2

REPORT INFORMATION
  Report Type: 
  Country: None (occurrence: None)
  Receive Date: 20100520
  Receipt Date: 20090916
  Transmission Date: 20101027
  Serious: Yes (Other)
  Sender: FDA-Public Use
  Company Number: 2009207776

PATIENT
  Age: 68 Year
  Sex: Female
  Weight: 55 kg

DRUGS (9)
  1. PROVERA [Suspect]
     Indication: HORMONE REPLACEMENT THERAPY
     Dosage: 10 MG ; 5 MG ; 2.5 MG
     Dates: start: 19850701, end: 19860401
  2. PROVERA [Suspect]
     Indication: HORMONE REPLACEMENT THERAPY
     Dosage: 10 MG ; 5 MG ; 2.5 MG
     Dates: start: 19890901, end: 19910101
  3. PROVERA [Suspect]
     Indication: HORMONE REPLACEMENT THERAPY
     Dosage: 10 MG ; 5 MG ; 2.5 MG
     Dates: start: 19920601, end: 19971101
  4. OGEN (ESTROPIPATE) UNKNOWN [Suspect]
     Indication: HORMONE REPLACEMENT THERAPY
     Dosage: 0.625 MG
     Dates: start: 19970301, end: 19971101
  5. PREMARIN [Suspect]
     Indication: HORMONE REPLACEMENT THERAPY
     Dosage: 0.625 MG ; 0.625 MG ; 0.3 MG ; 0.3 MG
     Dates: start: 19710301, end: 19721001
  6. PREMARIN [Suspect]
     Indication: HORMONE REPLACEMENT THERAPY
     Dosage: 0.625 MG ; 0.625 MG ; 0.3 MG ; 0.3 MG
     Dates: start: 19850701, end: 19860401
  7. PREMARIN [Suspect]
     Indication: HORMONE REPLACEMENT THERAPY
     Dosage: 0.625 MG ; 0.625 MG ; 0.3 MG ; 0.3 MG
     Dates: start: 19860901, end: 19861201
  8. PREMARIN [Suspect]
     Indication: HORMONE REPLACEMENT THERAPY
     Dosage: 0.625 MG ; 0.625 MG ; 0.3 MG ; 0.3 MG
     Dates: start: 19920601, end: 19970301
  9. ESTRADERM [Suspect]
     Indication: HORMONE REPLACEMENT THERAPY
     Dosage: 0.5 MG
     Dates: start: 19890901, end: 19910101

REACTIONS (1)
  - BREAST CANCER FEMALE [None]
